FAERS Safety Report 4909758-6 (Version None)
Quarter: 2006Q1

REPORT INFORMATION
  Report Type: 
  Country: None (occurrence: None)
  Receive Date: 20060208
  Receipt Date: 20060130
  Transmission Date: 20060701
  Serious: Yes (Death, Other)
  Sender: FDA-Public Use
  Company Number: 200610257BCC

PATIENT
  Age: 62 Year
  Sex: Female

DRUGS (2)
  1. ALEVE [Suspect]
     Indication: HYPERSOMNIA
     Dosage: QD, ORAL
     Route: 048
  2. ALCOHOL [Suspect]
     Dosage: QD,

REACTIONS (1)
  - LIVER DISORDER [None]
